FAERS Safety Report 6784294-3 (Version None)
Quarter: 2010Q2

REPORT INFORMATION
  Report Type: 
  Country: None (occurrence: None)
  Receive Date: 20100622
  Receipt Date: 20100611
  Transmission Date: 20101027
  Serious: Yes (Other)
  Sender: FDA-Public Use
  Company Number: US-BAXTER-2010BH015935

PATIENT

DRUGS (4)
  1. ADENOSINE [Suspect]
     Indication: ANEURYSM REPAIR
     Route: 065
  2. INHALED ANESTHETIC [Concomitant]
     Indication: GENERAL ANAESTHESIA
     Route: 055
  3. REMIFENTANIL [Concomitant]
     Indication: DRUG USE FOR UNKNOWN INDICATION
     Route: 065
  4. PROPOFOL [Concomitant]
     Indication: DRUG USE FOR UNKNOWN INDICATION
     Route: 065

REACTIONS (1)
  - TROPONIN INCREASED [None]
